FAERS Safety Report 4410465-7 (Version None)
Quarter: 2004Q3

REPORT INFORMATION
  Report Type: 
  Country: None (occurrence: None)
  Receive Date: 20040729
  Receipt Date: 20040617
  Transmission Date: 20050211
  Serious: Yes (Death)
  Sender: FDA-Public Use
  Company Number: DE-BRISTOL-MYERS SQUIBB COMPANY-12618609

PATIENT
  Age: 58 Year
  Sex: Female
  Weight: 70 kg

DRUGS (11)
  1. CETUXIMAB [Suspect]
     Indication: COLORECTAL CANCER METASTATIC
     Dosage: PT RECEIVED ONLY THE FIRST INFUSION AT 1040 HOUR.
     Route: 042
     Dates: start: 20040616, end: 20040616
  2. IRINOTECAN [Suspect]
     Indication: COLORECTAL CANCER METASTATIC
     Dosage: PT RECEIVED ONLY THE FIRST INFUSION
     Route: 042
     Dates: start: 20040616, end: 20040616
  3. ATENOLOL [Concomitant]
  4. VITAMIN B6 [Concomitant]
  5. IBUPROFEN [Concomitant]
  6. PANTOZOL [Concomitant]
  7. PROTHYRID [Concomitant]
  8. ENOXAPARIN SODIUM [Concomitant]
  9. CIBACEN [Concomitant]
  10. MOVICOL [Concomitant]
  11. DURAGESIC [Concomitant]

REACTIONS (5)
  - HYPOTENSION [None]
  - LUNG INFILTRATION [None]
  - RESPIRATORY FAILURE [None]
  - SYNCOPE [None]
  - TACHYCARDIA [None]
